FAERS Safety Report 8114851-3 (Version None)
Quarter: 2012Q1

REPORT INFORMATION
  Report Type: 
  Country: None (occurrence: None)
  Receive Date: 20120112
  Receipt Date: 20120106
  Transmission Date: 20120608
  Serious: Yes (Other)
  Sender: FDA-Public Use
  Company Number: 2012030729

PATIENT
  Age: 44 Year
  Sex: Female

DRUGS (1)
  1. BERINERT [Suspect]
     Indication: GASTROINTESTINAL OEDEMA
     Dosage: INTRAVENOUS (NOT OTHERWISE SPECIFIED)
     Route: 042
     Dates: start: 20070301

REACTIONS (2)
  - CONDITION AGGRAVATED [None]
  - HEREDITARY ANGIOEDEMA [None]
